FAERS Safety Report 7087779-8 (Version None)
Quarter: 2010Q4

REPORT INFORMATION
  Report Type: 
  Country: None (occurrence: None)
  Receive Date: 20101108
  Receipt Date: 20101025
  Transmission Date: 20110411
  Serious: Yes (Other)
  Sender: FDA-Public Use
  Company Number: ES-RANBAXY-2010RR-35553

PATIENT
  Age: 59 Year
  Sex: Male
  Weight: 110 kg

DRUGS (8)
  1. MIDAZOLAM HCL [Suspect]
     Dosage: 1.5 MG, UNK
  2. MIDAZOLAM HCL [Suspect]
     Dosage: 1 MG, UNK
  3. REMIFENTANIL [Suspect]
     Dosage: 0.1UG/KG/MIN
     Route: 042
  4. REMIFENTANIL [Suspect]
     Dosage: 0.05 UG/KG/MIN
  5. PROPOFOL [Suspect]
     Dosage: 1 MG/KG/H
     Route: 042
  6. PROPOFOL [Suspect]
     Dosage: 50 MG, UNK
  7. FLUMAZENIL [Suspect]
     Dosage: 0.25 MG, UNK
  8. NALOXONE [Suspect]
     Dosage: 0.4 MG, UNK

REACTIONS (2)
  - HYPOXIA [None]
  - MUSCLE RIGIDITY [None]
